FAERS Safety Report 6937566-3 (Version None)
Quarter: 2010Q3

REPORT INFORMATION
  Report Type: 
  Country: None (occurrence: None)
  Receive Date: 20100823
  Receipt Date: 20100810
  Transmission Date: 20110219
  Serious: Yes (Other)
  Sender: FDA-Public Use
  Company Number: ES-ELI_LILLY_AND_COMPANY-ES201008002584

PATIENT
  Age: 78 Year
  Sex: Male

DRUGS (4)
  1. FORTEO [Suspect]
     Dosage: UNK, UNKNOWN
     Route: 065
     Dates: start: 20100601, end: 20100701
  2. DACORTIN [Concomitant]
     Dosage: UNK, UNKNOWN
     Route: 065
  3. TERMALGIN [Concomitant]
     Dosage: UNK, UNKNOWN
     Route: 065
  4. RANITIDINA [Concomitant]

REACTIONS (1)
  - THROMBOCYTOPENIC PURPURA [None]
